FAERS Safety Report 16872650 (Version 1)
Quarter: 2019Q4

REPORT INFORMATION
  Report Type: Report from Study
  Country: US (occurrence: US)
  Receive Date: 20191001
  Receipt Date: 20191001
  Transmission Date: 20200122
  Serious: Yes (Other)
  Sender: FDA-Public Use
  Company Number: US-ACCORD-156012

PATIENT

DRUGS (1)
  1. METHOTREXATE. [Suspect]
     Active Substance: METHOTREXATE
     Indication: CARDIAC SARCOIDOSIS
     Route: 048

REACTIONS (2)
  - Diverticulitis [Unknown]
  - Off label use [Unknown]
